FAERS Safety Report 4619116-X (Version None)
Quarter: 2005Q2

REPORT INFORMATION
  Report Type: 
  Country: None (occurrence: None)
  Receive Date: 20050321
  Receipt Date: 20041027
  Transmission Date: 20051028
  Serious: Yes (Other)
  Sender: FDA-Public Use
  Company Number: 2002-01-0393

PATIENT
  Age: 64 Year
  Sex: Female
  Weight: 102.0593 kg

DRUGS (14)
  1. PEG-INTRON [Suspect]
     Indication: HEPATITIS C
     Dosage: 150 MCG SUBCUTANEOUS; 75 MCG SUBCUTANEOUS
     Route: 058
     Dates: start: 20011130, end: 20011214
  2. PEG-INTRON [Suspect]
     Indication: HEPATITIS C
     Dosage: 150 MCG SUBCUTANEOUS; 75 MCG SUBCUTANEOUS
     Route: 058
     Dates: start: 20011214
  3. RIBAVIRIN [Suspect]
     Indication: HEPATITIS C
     Dosage: 1200 MG QD ORAL; 1000 MG QD ORAL
     Route: 048
     Dates: start: 20011130
  4. RIBAVIRIN [Suspect]
     Indication: HEPATITIS C
     Dosage: 1200 MG QD ORAL; 1000 MG QD ORAL
     Route: 048
     Dates: start: 20040201
  5. LISINOPRIL [Concomitant]
  6. ATENOLOL [Concomitant]
  7. RABEPRAZOLE SODIUM [Concomitant]
  8. MULTI-VITAMINS [Concomitant]
  9. ASPIRIN [Concomitant]
  10. CALCIUM PHOSPHATE/ VITAMIN D [Concomitant]
  11. GLUCOSAMINE [Concomitant]
  12. MILK THISTLE FRUIT [Concomitant]
  13. . [Concomitant]
  14. . [Concomitant]

REACTIONS (4)
  - FULL BLOOD COUNT ABNORMAL [None]
  - RETINAL EXUDATES [None]
  - RETINAL HAEMORRHAGE [None]
  - VISUAL DISTURBANCE [None]
